FAERS Safety Report 8190864-0 (Version None)
Quarter: 2012Q1

REPORT INFORMATION
  Report Type: 
  Country: None (occurrence: None)
  Receive Date: 20120221
  Receipt Date: 20111229
  Transmission Date: 20120608
  Serious: No
  Sender: FDA-Public Use
  Company Number: 1000025674

PATIENT
  Age: 54 Year
  Sex: Female

DRUGS (8)
  1. VIIBRYD [Suspect]
     Indication: DEPRESSION
     Dosage: 10 MG (10 MG, 1 IN 1 D), ORAL, 20 MG (20 MG, 1 IN D), ORAL
     Route: 048
     Dates: start: 20110901, end: 20110901
  2. VIIBRYD [Suspect]
     Indication: DEPRESSION
     Dosage: 10 MG (10 MG, 1 IN 1 D), ORAL, 20 MG (20 MG, 1 IN D), ORAL
     Route: 048
     Dates: start: 20110901, end: 20110901
  3. VICODIN (VICODIN) (VICODIN) [Concomitant]
  4. SIMVASTATIN [Concomitant]
  5. TOPAMAX (TOPIRAMATE) (TOPIRAMATE) [Concomitant]
  6. TRAZODONE (TRAZODONE) (TRAZODONE) [Concomitant]
  7. VIIBRYD [Suspect]
     Indication: DEPRESSION
     Dosage: 40 MG (40 MG, 1 IN 1 D), ORAL, 20 MG (20 MG, 1 IN 1 D), ORAL
     Route: 048
     Dates: start: 20110901, end: 20111001
  8. VIIBRYD [Suspect]
     Indication: DEPRESSION
     Dosage: 40 MG (40 MG, 1 IN 1 D), ORAL, 20 MG (20 MG, 1 IN 1 D), ORAL
     Route: 048
     Dates: start: 20111001, end: 20110101

REACTIONS (2)
  - AXILLARY PAIN [None]
  - PARAESTHESIA [None]
